FAERS Safety Report 13568621 (Version 1)
Quarter: 2017Q2

REPORT INFORMATION
  Report Type: Spontaneous
  Country: US (occurrence: US)
  Receive Date: 20170522
  Receipt Date: 20170522
  Transmission Date: 20170830
  Serious: Yes (Hospitalization)
  Sender: FDA-Public Use
  Company Number: None

PATIENT
  Age: 46 Year
  Sex: Male

DRUGS (1)
  1. OTREXUP [Suspect]
     Active Substance: METHOTREXATE
     Dosage: ?          OTHER FREQUENCY:WEEKLY;?

REACTIONS (2)
  - Drug dose omission [None]
  - Wound [None]

NARRATIVE: CASE EVENT DATE: 20170519
